FAERS Safety Report 15131123 (Version 3)
Quarter: 2019Q3

REPORT INFORMATION
  Report Type: Spontaneous
  Country: AU (occurrence: AU)
  Receive Date: 20180711
  Receipt Date: 20190806
  Transmission Date: 20191004
  Serious: Yes (Other)
  Sender: FDA-Public Use
  Company Number: AU-BRISTOL-MYERS SQUIBB COMPANY-BMS-2018-063988

PATIENT
  Age: 46 Year
  Sex: Male

DRUGS (1)
  1. NIVOLUMAB [Suspect]
     Active Substance: NIVOLUMAB
     Indication: SMALL CELL LUNG CANCER
     Dosage: 9 WEEKS, INITIATED AT 93 MONTHS AFTER DIAGNOSIS
     Route: 065

REACTIONS (3)
  - Pericardial effusion [Unknown]
  - Intentional product use issue [Unknown]
  - Cardiac tamponade [Unknown]
